FAERS Safety Report 4322709-0 (Version None)
Quarter: 2004Q1

REPORT INFORMATION
  Report Type: 
  Country: None (occurrence: None)
  Receive Date: 20040319
  Receipt Date: 20040309
  Transmission Date: 20041129
  Serious: Yes (Death, Hospitalization)
  Sender: FDA-Public Use
  Company Number: US-SHR-04-020322

PATIENT
  Age: 66 Year
  Sex: Male

DRUGS (8)
  1. BETASERON [Suspect]
     Indication: PROGRESSIVE MULTIPLE SCLEROSIS
     Dosage: 1 ML, EVERY 2D, SUBCUTANEOUS; SEE IMAGE
     Route: 058
     Dates: start: 20000101, end: 20040101
  2. BETASERON [Suspect]
     Indication: PROGRESSIVE MULTIPLE SCLEROSIS
     Dosage: 1 ML, EVERY 2D, SUBCUTANEOUS; SEE IMAGE
     Route: 058
     Dates: start: 19940101
  3. BACLOFEN [Concomitant]
  4. VALIUM              /NET/ (DIAZEPAM) [Concomitant]
  5. NEURONTIN [Concomitant]
  6. ALPHAGAN [Concomitant]
  7. CIMEGIN (METAMIZOLE SODIUM) [Concomitant]
  8. ADVIL [Concomitant]

REACTIONS (4)
  - GASTROINTESTINAL HAEMORRHAGE [None]
  - PNEUMONIA [None]
  - SILENT MYOCARDIAL INFARCTION [None]
  - VOLUME BLOOD DECREASED [None]
